FAERS Safety Report 4927711-3 (Version None)
Quarter: 2006Q1

REPORT INFORMATION
  Report Type: 
  Country: None (occurrence: None)
  Receive Date: 20060228
  Receipt Date: 20060216
  Transmission Date: 20060701
  Serious: Yes (Other)
  Sender: FDA-Public Use
  Company Number: NL-JNJFOC-20060200151

PATIENT
  Sex: Male
  Weight: 84 kg

DRUGS (5)
  1. INFLIXIMAB [Suspect]
     Indication: CROHN'S DISEASE
     Route: 042
  2. ENTOCORT [Concomitant]
     Indication: CROHN'S DISEASE
     Route: 065
     Dates: start: 20010701
  3. METHOTREXATE [Concomitant]
     Indication: CROHN'S DISEASE
     Route: 065
  4. FOLIUMZUUR [Concomitant]
     Route: 065
  5. PREDNISONE [Concomitant]
     Indication: CROHN'S DISEASE
     Route: 065
     Dates: start: 20050120

REACTIONS (1)
  - BASAL CELL CARCINOMA [None]
